FAERS Safety Report 4731164-8 (Version None)
Quarter: 2005Q3

REPORT INFORMATION
  Report Type: 
  Country: None (occurrence: None)
  Receive Date: 20050802
  Receipt Date: 20050727
  Transmission Date: 20060218
  Serious: Yes (Hospitalization)
  Sender: FDA-Public Use
  Company Number: GB-BOEHRINGER INGELHEIM PHARMACEUTICALS, INC.-2005-UK-01386UK

PATIENT
  Sex: Male

DRUGS (3)
  1. VIRAMUNE TABLETS (00015/0215/A) [Suspect]
     Dosage: 100 TABLETS
  2. VIRAMUNE TABLETS (00015/0215/A) [Suspect]
  3. KALETRA [Suspect]

REACTIONS (2)
  - INTENTIONAL MISUSE [None]
  - OVERDOSE [None]
